FAERS Safety Report 4645393-5 (Version None)
Quarter: 2005Q2

REPORT INFORMATION
  Report Type: 
  Country: None (occurrence: None)
  Receive Date: 20050331
  Receipt Date: 20050221
  Transmission Date: 20051028
  Serious: Yes (Death)
  Sender: FDA-Public Use
  Company Number: 04P-163-0249841-00

PATIENT
  Sex: Male
  Weight: 74.0724 kg

DRUGS (5)
  1. HUMIRA [Suspect]
     Dosage: 40 MG, 1 IN 2 WK, SUBCUTANEOUS
     Route: 058
     Dates: start: 20030901
  2. METHYLPREDNISOLONE [Concomitant]
  3. PROPACET 100 [Concomitant]
  4. PARACETAMOL [Concomitant]
  5. IBUPROFEN [Concomitant]

REACTIONS (1)
  - DEATH [None]
